FAERS Safety Report 7740197-9 (Version None)
Quarter: 2011Q3

REPORT INFORMATION
  Report Type: 
  Country: None (occurrence: None)
  Receive Date: 20110909
  Receipt Date: 20110909
  Transmission Date: 20111222
  Serious: Yes (Life-Threatening)
  Sender: FDA-Public Use
  Company Number: None

PATIENT
  Sex: Male
  Weight: 72.574 kg

DRUGS (2)
  1. BUSPIRONE HYDROCHLORIDE [Suspect]
     Indication: SUICIDE ATTEMPT
     Dosage: 10MG
     Route: 048
     Dates: start: 20110301, end: 20110701
  2. BUSPIRONE HYDROCHLORIDE [Suspect]
     Indication: PANIC ATTACK
     Dosage: 10MG
     Route: 048
     Dates: start: 20110301, end: 20110701

REACTIONS (11)
  - TREMOR [None]
  - DYSPNOEA [None]
  - RASH [None]
  - INTENTIONAL OVERDOSE [None]
  - MUSCULOSKELETAL STIFFNESS [None]
  - MASKED FACIES [None]
  - DYSKINESIA [None]
  - HEART RATE IRREGULAR [None]
  - SUICIDE ATTEMPT [None]
  - CHEST PAIN [None]
  - DIZZINESS [None]
